FAERS Safety Report 7835256-6 (Version None)
Quarter: 2011Q4

REPORT INFORMATION
  Report Type: 
  Country: None (occurrence: None)
  Receive Date: 20111020
  Receipt Date: 20111011
  Transmission Date: 20120403
  Serious: Yes (Hospitalization, Disabling, Other)
  Sender: FDA-Public Use
  Company Number: LEO-2011-00530

PATIENT
  Age: 24 Year
  Sex: Female

DRUGS (1)
  1. INNOHEP [Suspect]
     Indication: SURGERY
     Dosage: (4500 IU)

REACTIONS (2)
  - CAUDA EQUINA SYNDROME [None]
  - EXTRADURAL HAEMATOMA [None]
